FAERS Safety Report 8272250-8 (Version None)
Quarter: 2012Q2

REPORT INFORMATION
  Report Type: 
  Country: None (occurrence: None)
  Receive Date: 20120410
  Receipt Date: 20120331
  Transmission Date: 20120825
  Serious: Yes (Hospitalization)
  Sender: FDA-Public Use
  Company Number: PHHY2012DE028400

PATIENT
  Sex: Female
  Weight: 89 kg

DRUGS (24)
  1. XIPAMIDE [Suspect]
     Indication: CARDIAC FAILURE
     Dosage: 40 MG, UNK
     Dates: start: 20061205
  2. ACTRAPID HUMAN [Suspect]
     Indication: DIABETES MELLITUS
     Dosage: 26-6-8/DAY
     Route: 058
  3. ALDOSTERONE ANTAGONISTS [Concomitant]
  4. ALPHA-RECEPTOR BLOCKER [Concomitant]
  5. RASILEZ [Suspect]
     Dosage: 300 MG, DAILY
     Dates: start: 20091202
  6. CARVEDILOL [Suspect]
     Indication: HYPERTENSION
     Dosage: 50 MG, UNK
     Route: 048
     Dates: start: 20060831
  7. LANTUS [Suspect]
     Indication: DIABETES MELLITUS
     Dosage: 0-0-28/DAY
     Route: 058
  8. VASODILATORS USED IN CARDIAC DISEASES [Concomitant]
     Dosage: UNK
     Dates: end: 20100422
  9. DIGITOXIN TAB [Suspect]
     Indication: ATRIAL FIBRILLATION
     Dosage: 1 DF, UNK
     Dates: start: 20060831
  10. ANTIHYPERTENSIVES [Concomitant]
     Dosage: UNK
     Dates: start: 20110516
  11. LANTUS [Suspect]
     Dosage: 0-0-30/DAY
     Route: 058
  12. ANTIDEPRESSANTS [Concomitant]
  13. FUROSEMIDE [Suspect]
     Indication: RENAL FAILURE
     Dosage: 500 MG, UNK
     Route: 048
     Dates: start: 20060831
  14. ACTRAPID HUMAN [Suspect]
     Dosage: 34-10-10/DAY
     Route: 058
  15. NITRATES [Concomitant]
  16. PANTOPRAZOLE [Suspect]
     Dosage: 20 MG, UNK
     Dates: start: 20110418
  17. EXFORGE [Suspect]
     Indication: HYPERTENSION
     Dosage: 1 DF, UNK
     Route: 048
  18. ACTRAPID HUMAN [Suspect]
     Dosage: 26-10-10/DAY
     Route: 058
  19. HMG COA REDUCTASE INHIBITORS [Concomitant]
  20. RASILEZ [Suspect]
     Indication: HYPERTENSION
     Dosage: 150 MG DAILY
     Dates: start: 20081210, end: 20091202
  21. ASPIRIN [Suspect]
     Indication: COAGULOPATHY
     Dosage: 1 DF, UNK
     Route: 048
     Dates: start: 20011025
  22. DIGITOXIN TAB [Suspect]
     Indication: CARDIAC FAILURE
  23. LASIX [Suspect]
     Indication: RENAL FAILURE
     Dosage: 500 MG, UNK
     Route: 048
     Dates: start: 20060831
  24. ORAL ANTIDIABETICS [Concomitant]
     Indication: DIABETES MELLITUS

REACTIONS (5)
  - CORONARY ARTERY DISEASE [None]
  - CARDIAC FAILURE [None]
  - RIGHT VENTRICULAR FAILURE [None]
  - TRANSIENT ISCHAEMIC ATTACK [None]
  - DEPRESSION [None]
